FAERS Safety Report 9045418 (Version 1)
Quarter: 2013Q1

REPORT INFORMATION
  Report Type: Report from Study
  Country: US (occurrence: US)
  Receive Date: 20130131
  Receipt Date: 20130131
  Transmission Date: 20140127
  Serious: Yes (Other)
  Sender: FDA-Public Use
  Company Number: US-ABBOTT-12P-163-1004272-00

PATIENT
  Age: 69 Year
  Sex: Female

DRUGS (14)
  1. HUMIRA [Suspect]
     Indication: CROHN^S DISEASE
     Dates: start: 20120307
  2. NEURONTIN [Concomitant]
     Indication: ARTHRITIS
     Dosage: 200 MG EVERY A.M AND 400 MG EVERY EVENING
  3. PENTASA [Concomitant]
     Indication: CROHN^S DISEASE
     Dosage: 500 MG X 8 TABS DAILY
  4. NEXIUM [Concomitant]
     Indication: GASTROOESOPHAGEAL REFLUX DISEASE
  5. PRIMIDONE [Concomitant]
     Indication: CONVULSION
     Dosage: 2 TABS THREE TIMES DAILY
  6. PRIMIDONE [Concomitant]
     Indication: MIGRAINE
  7. INDERAL [Concomitant]
     Indication: CONVULSION
     Dosage: EVERY A.M.
  8. INDERAL [Concomitant]
     Indication: MIGRAINE
  9. NORPACE CR [Concomitant]
     Indication: CARDIAC DISORDER
  10. PHENERGAN [Concomitant]
     Indication: NAUSEA
  11. LORTAB [Concomitant]
     Indication: PAIN
     Dosage: REPORTED SHE TYPICALLY USES TYLENOL INSTEAD
  12. TYLENOL [Concomitant]
     Indication: PRODUCT USED FOR UNKNOWN INDICATION
  13. LOMOTIL [Concomitant]
     Indication: DIARRHOEA
  14. B12 [Concomitant]
     Indication: PRODUCT USED FOR UNKNOWN INDICATION
     Dosage: MONTHLY

REACTIONS (3)
  - Rectal abscess [Recovering/Resolving]
  - Impaired healing [Unknown]
  - Abscess [Unknown]
